FAERS Safety Report 7038982-4 (Version None)
Quarter: 2010Q4

REPORT INFORMATION
  Report Type: 
  Country: None (occurrence: None)
  Receive Date: 20101012
  Receipt Date: 20100930
  Transmission Date: 20110411
  Serious: Yes (Life-Threatening, Other)
  Sender: FDA-Public Use
  Company Number: JP-JNJFOC-20091203982

PATIENT
  Sex: Male
  Weight: 48 kg

DRUGS (8)
  1. REMICADE [Suspect]
     Indication: CROHN'S DISEASE
     Dosage: 12 INFUSIONS ON UNSPECIFED DATES
     Route: 042
  2. REMICADE [Suspect]
     Dosage: TA-650 (INFLIXIMAB)
     Route: 042
  3. REMICADE [Suspect]
     Dosage: COMMERCIAL DRUG
     Route: 042
  4. REMICADE [Suspect]
     Dosage: 14TH DOSE OF COMMERCIAL DRUG (20TH  TOTAL DOSE)
     Route: 042
  5. REMICADE [Suspect]
     Dosage: TA-650 (INFLIXIMAB); 5 INFUSIONS ON UNSPECIFIED DATES
     Route: 042
  6. PENTASA [Concomitant]
     Indication: CROHN'S DISEASE
     Route: 048
  7. POLAPREZINC [Concomitant]
     Indication: GASTRITIS
     Route: 048
  8. LIPITOR [Concomitant]
     Indication: HYPERCHOLESTEROLAEMIA
     Route: 048

REACTIONS (2)
  - B-CELL LYMPHOMA [None]
  - EPSTEIN-BARR VIRUS ASSOCIATED LYMPHOPROLIFERATIVE DISORDER [None]
